FAERS Safety Report 5388369-5 (Version None)
Quarter: 2007Q3

REPORT INFORMATION
  Report Type: 
  Country: None (occurrence: None)
  Receive Date: 20070716
  Receipt Date: 20070703
  Transmission Date: 20080115
  Serious: Yes (Hospitalization, Other)
  Sender: FDA-Public Use
  Company Number: US-ELI_LILLY_AND_COMPANY-US200702005250

PATIENT
  Age: 83 Year
  Sex: Female

DRUGS (18)
  1. FORTEO [Suspect]
     Indication: OSTEOPOROSIS
     Dosage: 20 UG, DAILY (1/D)
     Route: 058
     Dates: start: 20060201, end: 20070201
  2. FORTEO [Suspect]
     Dosage: 20 UG, DAILY (1/D)
     Dates: start: 20070327
  3. METHOTREXATE [Concomitant]
     Indication: ARTHRALGIA
     Dates: start: 20070201
  4. METHOTREXATE [Concomitant]
     Dates: start: 20060101
  5. MULTI-VITAMIN [Concomitant]
     Dosage: UNK, DAILY (1/D)
  6. SODIUM PHOSPHATES [Concomitant]
     Dosage: UNK, 2/D
  7. LASIX [Concomitant]
     Dosage: 40 MG, DAILY (1/D)
  8. VITAMIN D [Concomitant]
     Dosage: 400 U, DAILY (1/D)
  9. DETROL [Concomitant]
     Dosage: 2 MG, DAILY (1/D)
  10. CALCIUM CARBONATE [Concomitant]
     Dosage: 1000 MG, 2/D
  11. ZOLPIDEM TARTRATE [Concomitant]
     Dosage: 5 MG, EACH EVENING
  12. LISINOPRIL [Concomitant]
     Dosage: 10 MG, DAILY (1/D)
  13. FELODIPINE [Concomitant]
     Dosage: 10 MG, DAILY (1/D)
  14. ASCORBIC ACID [Concomitant]
     Dosage: 700 MG, DAILY (1/D)
  15. BACTRIM [Concomitant]
     Dosage: UNK, 2/D
  16. TRAZODONE HCL [Concomitant]
     Dosage: 10 MG, DAILY (1/D)
  17. OXYCONTIN [Concomitant]
     Dosage: 20 MG, EACH MORNING
  18. DILANTIN [Concomitant]

REACTIONS (12)
  - ANAEMIA [None]
  - ANAPHYLACTIC TRANSFUSION REACTION [None]
  - CARDIAC MURMUR [None]
  - COAGULOPATHY [None]
  - DYSPHAGIA [None]
  - HAEMATOMA [None]
  - HEPARIN-INDUCED THROMBOCYTOPENIA [None]
  - HYPOTENSION [None]
  - NODAL ARRHYTHMIA [None]
  - PNEUMONIA [None]
  - PULMONARY EMBOLISM [None]
  - RENAL FAILURE ACUTE [None]
